FAERS Safety Report 10013326 (Version 2)
Quarter: 2014Q2

REPORT INFORMATION
  Report Type: Spontaneous
  Country: US (occurrence: US)
  Receive Date: 20140314
  Receipt Date: 20140506
  Transmission Date: 20141212
  Serious: No
  Sender: FDA-Public Use
  Company Number: US-PFIZER INC-2014073667

PATIENT
  Age: 67 Year
  Sex: Female
  Weight: 135 kg

DRUGS (3)
  1. LYRICA [Suspect]
     Indication: DIABETIC NEUROPATHY
     Dosage: 200 MG, 2X/DAY
     Route: 048
  2. LYRICA [Suspect]
     Indication: NEUROPATHY PERIPHERAL
     Dosage: 400 MG, 2X/DAY
     Route: 048
     Dates: start: 20140123, end: 20140410
  3. LANTUS [Concomitant]
     Indication: DIABETES MELLITUS
     Dosage: 40 IU, 2X/DAY

REACTIONS (3)
  - Malaise [Unknown]
  - Somnolence [Recovered/Resolved]
  - Abdominal pain lower [Recovered/Resolved]
